FAERS Safety Report 10875150 (Version 1)
Quarter: 2020Q3

REPORT INFORMATION
  Report Type: Report from Study
  Country: CA (occurrence: CA)
  Receive Date: 20150227
  Receipt Date: 20150227
  Transmission Date: 20201105
  Serious: Yes (Death, Hospitalization, Other)
  Sender: FDA-Public Use
  Company Number: CA-MYLANLABS-2015M1006547

PATIENT

DRUGS (15)
  1. LANTUS [Concomitant]
     Active Substance: INSULIN GLARGINE
     Dosage: UNK
     Dates: start: 20090520
  2. MAGNESIUM?ROUGIER [Suspect]
     Active Substance: MAGNESIUM GLUCEPTATE
     Dosage: UNK
     Dates: start: 20100419
  3. IBUPROFEN. [Concomitant]
     Active Substance: IBUPROFEN
     Dosage: UNK
     Dates: start: 20100416
  4. TREMELIMUMAB. [Suspect]
     Active Substance: TREMELIMUMAB
     Indication: PANCREATIC CARCINOMA METASTATIC
     Dosage: 668 MG, UNK, Q 84 DAY
     Route: 042
     Dates: start: 20091201
  5. PANCRELIPASE. [Concomitant]
     Active Substance: PANCRELIPASE
     Dosage: UNK
     Dates: start: 20090520
  6. BUCKLEYS DAY COLD [Concomitant]
     Dosage: UNK
     Dates: start: 20100213
  7. ANUSOL                             /00117301/ [Concomitant]
     Active Substance: BALSAM PERU\BISMUTH HYDROXIDE\BISMUTH SUBGALLATE\BORIC ACID\ZINC OXIDE
     Dosage: UNK
     Dates: start: 20100213
  8. NOVORAPID [Concomitant]
     Active Substance: INSULIN ASPART
     Dosage: UNK
     Dates: start: 20090520
  9. MAXERAN [Concomitant]
     Active Substance: METOCLOPRAMIDE HYDROCHLORIDE
     Dosage: UNK
     Dates: start: 20100419
  10. LOSEC [Concomitant]
     Active Substance: OMEPRAZOLE
     Dosage: UNK
     Dates: start: 20100503
  11. GEMCITABINE. [Suspect]
     Active Substance: GEMCITABINE
     Indication: PANCREATIC CARCINOMA METASTATIC
     Dosage: 1750 MG, QW FOR 3 WEEKS OUT OF 4
     Route: 042
     Dates: start: 20091201
  12. BISOPROLOL [Concomitant]
     Active Substance: BISOPROLOL
     Dosage: UNK
     Dates: start: 20100109
  13. TUMS                               /00193601/ [Concomitant]
     Active Substance: CALCIUM CARBONATE\MAGNESIUM CARBONATE\MAGNESIUM TRISILICATE
     Dosage: UNK
     Dates: start: 20090520
  14. IMODIUM [Concomitant]
     Active Substance: LOPERAMIDE HYDROCHLORIDE
     Dosage: UNK
     Dates: start: 20091216
  15. ASA [Concomitant]
     Active Substance: ASPIRIN
     Dosage: UNK
     Dates: start: 20100109

REACTIONS (4)
  - Disease progression [Fatal]
  - Diarrhoea [Not Recovered/Not Resolved]
  - Pancreatic carcinoma metastatic [Fatal]
  - Dehydration [Not Recovered/Not Resolved]

NARRATIVE: CASE EVENT DATE: 20100614
